FAERS Safety Report 25288235 (Version 2)
Quarter: 2025Q2

REPORT INFORMATION
  Report Type: Spontaneous
  Country: DE (occurrence: DE)
  Receive Date: 20250509
  Receipt Date: 20250519
  Transmission Date: 20250716
  Serious: Yes (Other)
  Sender: MYLAN
  Company Number: DE-ARISTO PHARMA-CITA202503051

PATIENT
  Sex: Female

DRUGS (4)
  1. CITALOPRAM [Suspect]
     Active Substance: CITALOPRAM
     Indication: Product used for unknown indication
  2. CITALOPRAM [Suspect]
     Active Substance: CITALOPRAM
     Route: 065
  3. CITALOPRAM [Suspect]
     Active Substance: CITALOPRAM
     Route: 065
  4. CITALOPRAM [Suspect]
     Active Substance: CITALOPRAM

REACTIONS (3)
  - Corneal infection [Unknown]
  - Vision blurred [Not Recovered/Not Resolved]
  - Corneal oedema [Unknown]
